FAERS Safety Report 23920192 (Version 3)
Quarter: 2025Q3

REPORT INFORMATION
  Report Type: Spontaneous
  Country: EU (occurrence: EU)
  Receive Date: 20240530
  Receipt Date: 20250828
  Transmission Date: 20251020
  Serious: Yes (Hospitalization, Other)
  Sender: MYLAN
  Company Number: EU-EPIFARMA-20240550PANTOP

PATIENT
  Age: 45 Year
  Sex: Male

DRUGS (40)
  1. PANTOPRAZOLE [Suspect]
     Active Substance: PANTOPRAZOLE
     Indication: Liver transplant
  2. PANTOPRAZOLE [Suspect]
     Active Substance: PANTOPRAZOLE
     Route: 065
  3. PANTOPRAZOLE [Suspect]
     Active Substance: PANTOPRAZOLE
     Route: 065
  4. PANTOPRAZOLE [Suspect]
     Active Substance: PANTOPRAZOLE
  5. SERTRALINE [Concomitant]
     Active Substance: SERTRALINE HYDROCHLORIDE
     Indication: Liver transplant
  6. SERTRALINE [Concomitant]
     Active Substance: SERTRALINE HYDROCHLORIDE
     Route: 065
  7. SERTRALINE [Concomitant]
     Active Substance: SERTRALINE HYDROCHLORIDE
     Route: 065
  8. SERTRALINE [Concomitant]
     Active Substance: SERTRALINE HYDROCHLORIDE
  9. MYCOPHENOLATE MOFETIL [Concomitant]
     Active Substance: MYCOPHENOLATE MOFETIL
     Indication: Liver transplant
  10. MYCOPHENOLATE MOFETIL [Concomitant]
     Active Substance: MYCOPHENOLATE MOFETIL
     Route: 065
  11. MYCOPHENOLATE MOFETIL [Concomitant]
     Active Substance: MYCOPHENOLATE MOFETIL
     Route: 065
  12. MYCOPHENOLATE MOFETIL [Concomitant]
     Active Substance: MYCOPHENOLATE MOFETIL
  13. CORTISONE ACETATE [Concomitant]
     Active Substance: CORTISONE ACETATE
     Dosage: 25 MILLIGRAM, BID
     Dates: start: 202301, end: 202305
  14. CORTISONE ACETATE [Concomitant]
     Active Substance: CORTISONE ACETATE
     Dosage: 25 MILLIGRAM, BID
     Route: 065
     Dates: start: 202301, end: 202305
  15. CORTISONE ACETATE [Concomitant]
     Active Substance: CORTISONE ACETATE
     Dosage: 25 MILLIGRAM, BID
     Route: 065
     Dates: start: 202301, end: 202305
  16. CORTISONE ACETATE [Concomitant]
     Active Substance: CORTISONE ACETATE
     Dosage: 25 MILLIGRAM, BID
     Dates: start: 202301, end: 202305
  17. RAMIPRIL [Concomitant]
     Active Substance: RAMIPRIL
     Indication: Liver transplant
  18. RAMIPRIL [Concomitant]
     Active Substance: RAMIPRIL
     Route: 065
  19. RAMIPRIL [Concomitant]
     Active Substance: RAMIPRIL
     Route: 065
  20. RAMIPRIL [Concomitant]
     Active Substance: RAMIPRIL
  21. TACROLIMUS [Concomitant]
     Active Substance: TACROLIMUS
     Indication: Liver transplant
  22. TACROLIMUS [Concomitant]
     Active Substance: TACROLIMUS
     Route: 065
  23. TACROLIMUS [Concomitant]
     Active Substance: TACROLIMUS
     Route: 065
  24. TACROLIMUS [Concomitant]
     Active Substance: TACROLIMUS
  25. SODIUM CHLORIDE [Concomitant]
     Active Substance: SODIUM CHLORIDE
     Dosage: 500 MILLIGRAM, BID
     Dates: start: 202301, end: 20230616
  26. SODIUM CHLORIDE [Concomitant]
     Active Substance: SODIUM CHLORIDE
     Dosage: 500 MILLIGRAM, BID
     Route: 065
     Dates: start: 202301, end: 20230616
  27. SODIUM CHLORIDE [Concomitant]
     Active Substance: SODIUM CHLORIDE
     Dosage: 500 MILLIGRAM, BID
     Route: 065
     Dates: start: 202301, end: 20230616
  28. SODIUM CHLORIDE [Concomitant]
     Active Substance: SODIUM CHLORIDE
     Dosage: 500 MILLIGRAM, BID
     Dates: start: 202301, end: 20230616
  29. ASPIRIN [Concomitant]
     Active Substance: ASPIRIN
     Indication: Liver transplant
  30. ASPIRIN [Concomitant]
     Active Substance: ASPIRIN
     Route: 065
  31. ASPIRIN [Concomitant]
     Active Substance: ASPIRIN
     Route: 065
  32. ASPIRIN [Concomitant]
     Active Substance: ASPIRIN
  33. URSODIOL [Concomitant]
     Active Substance: URSODIOL
     Indication: Liver transplant
  34. URSODIOL [Concomitant]
     Active Substance: URSODIOL
     Route: 065
  35. URSODIOL [Concomitant]
     Active Substance: URSODIOL
     Route: 065
  36. URSODIOL [Concomitant]
     Active Substance: URSODIOL
  37. FUROSEMIDE [Concomitant]
     Active Substance: FUROSEMIDE
     Indication: Liver transplant
  38. FUROSEMIDE [Concomitant]
     Active Substance: FUROSEMIDE
     Route: 065
  39. FUROSEMIDE [Concomitant]
     Active Substance: FUROSEMIDE
     Route: 065
  40. FUROSEMIDE [Concomitant]
     Active Substance: FUROSEMIDE

REACTIONS (7)
  - Decreased appetite [Recovered/Resolved]
  - Azotaemia [Recovered/Resolved]
  - Headache [Recovered/Resolved]
  - Nausea [Recovered/Resolved]
  - Confusional state [Recovered/Resolved]
  - Asthenia [Recovered/Resolved]
  - Hyponatraemia [Recovered/Resolved]

NARRATIVE: CASE EVENT DATE: 20220315
